FAERS Safety Report 17375138 (Version 1)
Quarter: 2020Q1

REPORT INFORMATION
  Report Type: Spontaneous
  Country: US (occurrence: US)
  Receive Date: 20200204
  Receipt Date: 20200204
  Transmission Date: 20200409
  Serious: Yes (Life-Threatening, Hospitalization)
  Sender: FDA-Public Use
  Company Number: None

PATIENT
  Age: 16 Year
  Sex: Female
  Weight: 45.9 kg

DRUGS (2)
  1. TRETINOIN. [Concomitant]
     Active Substance: TRETINOIN
  2. ACCUTANE [Suspect]
     Active Substance: ISOTRETINOIN
     Indication: ACNE
     Dosage: ?          QUANTITY:2 CAPSULE(S);?
     Route: 048
     Dates: start: 20190905, end: 20190920

REACTIONS (12)
  - Nasal dryness [None]
  - Asthenia [None]
  - Dyspnoea [None]
  - Dizziness [None]
  - Chest discomfort [None]
  - Loss of consciousness [None]
  - Anaphylactic reaction [None]
  - Drug hypersensitivity [None]
  - Dry skin [None]
  - Chapped lips [None]
  - Epistaxis [None]
  - Wheezing [None]

NARRATIVE: CASE EVENT DATE: 20190917
